FAERS Safety Report 21513641 (Version 3)
Quarter: 2022Q4

REPORT INFORMATION
  Report Type: Report from Study
  Country: FR (occurrence: None)
  Receive Date: 20221027
  Receipt Date: 20221207
  Transmission Date: 20230113
  Serious: Yes (Hospitalization)
  Sender: FDA-Public Use
  Company Number: FR-ROCHE-3205787

PATIENT
  Age: 26 Year
  Sex: Female
  Weight: 58 kg

DRUGS (10)
  1. ATEZOLIZUMAB [Suspect]
     Active Substance: ATEZOLIZUMAB
     Indication: Ovarian epithelial cancer
     Dosage: ON 29/SEP/2022 2:15 PM, SHE RECEIVED MOST RECENT DOSE 1200 MG OF ATEZOLIZUMAB PRIOR TO SERIOUS ADVER
     Route: 041
     Dates: start: 20211216
  2. BEVACIZUMAB [Suspect]
     Active Substance: BEVACIZUMAB
     Indication: Ovarian epithelial cancer
     Dosage: ON 29/SEP/2022 3:20 PM, SHE RECEIVED MOST RECENT DOSE 875 MG OF BEVACIZUMAB PRIOR TO SERIOUS ADVERSE
     Route: 042
     Dates: start: 20211216
  3. LEVOTHYROXINE [Concomitant]
     Active Substance: LEVOTHYROXINE
     Indication: Hypothyroidism
     Route: 048
     Dates: start: 20220217
  4. LEVOTHYROXINE [Concomitant]
     Active Substance: LEVOTHYROXINE
     Route: 048
     Dates: start: 20220929
  5. PREDNISOLONE [Concomitant]
     Active Substance: PREDNISOLONE
     Route: 048
     Dates: start: 20220711
  6. LIDOCAINE [Concomitant]
     Active Substance: LIDOCAINE
     Indication: Vulvovaginal dryness
     Dosage: 1 UNKNOWN
     Route: 067
     Dates: start: 20220824, end: 20220924
  7. EMLA [Concomitant]
     Active Substance: LIDOCAINE\PRILOCAINE
     Indication: Pain
     Dosage: 1 OTHER
     Route: 061
     Dates: start: 20220929
  8. ESOMEPRAZOLE [Concomitant]
     Active Substance: ESOMEPRAZOLE
     Route: 048
     Dates: start: 20221110
  9. DAFALGAN [Concomitant]
     Active Substance: ACETAMINOPHEN
     Indication: Pain
     Route: 048
     Dates: start: 20221110
  10. PULMICORT TURBUHALER [Concomitant]
     Active Substance: BUDESONIDE
     Indication: Dyspnoea
     Dosage: 1 INHALATION
     Route: 048
     Dates: start: 20221020

REACTIONS (1)
  - Pyelonephritis [Recovered/Resolved]

NARRATIVE: CASE EVENT DATE: 20221006
